FAERS Safety Report 10440922 (Version 1)
Quarter: 2014Q3

REPORT INFORMATION
  Report Type: Spontaneous
  Country: US (occurrence: None)
  Receive Date: 20140905
  Receipt Date: 20140905
  Transmission Date: 20150326
  Serious: Yes (Other)
  Sender: FDA-Public Use
  Company Number: ADR-2014-01592

PATIENT
  Sex: Male

DRUGS (1)
  1. BACLOFEN INTRATHECAL [Suspect]
     Active Substance: BACLOFEN
     Indication: MUSCLE SPASTICITY

REACTIONS (16)
  - Effusion [None]
  - Constipation [None]
  - Device dislocation [None]
  - Somnolence [None]
  - Overdose [None]
  - Muscle tightness [None]
  - Posture abnormal [None]
  - Discomfort [None]
  - Drug resistance [None]
  - No therapeutic response [None]
  - Catheter site swelling [None]
  - Device leakage [None]
  - Hypotonia [None]
  - Balance disorder [None]
  - Adverse event [None]
  - Device failure [None]
